FAERS Safety Report 4870418-1 (Version None)
Quarter: 2006Q1

REPORT INFORMATION
  Report Type: 
  Country: None (occurrence: None)
  Receive Date: 20060103
  Receipt Date: 20041206
  Transmission Date: 20060701
  Serious: No
  Sender: FDA-Public Use
  Company Number: US-BRISTOL-MYERS SQUIBB COMPANY-12788576

PATIENT
  Sex: Female

DRUGS (1)
  1. DESYREL [Suspect]
     Indication: DEPRESSION
     Route: 048
     Dates: start: 20041205, end: 20041205

REACTIONS (3)
  - DYSURIA [None]
  - INSOMNIA [None]
  - NIGHTMARE [None]
